FAERS Safety Report 20796910 (Version 1)
Quarter: 2022Q2

REPORT INFORMATION
  Report Type: Spontaneous
  Country: US (occurrence: US)
  Receive Date: 20220506
  Receipt Date: 20220506
  Transmission Date: 20220721
  Serious: No
  Sender: FDA-Public Use
  Company Number: US-PFIZER INC-2021365193

PATIENT
  Age: 71 Year
  Sex: Female

DRUGS (1)
  1. EUCRISA [Suspect]
     Active Substance: CRISABOROLE
     Indication: Eczema eyelids
     Dosage: UNK (60G TUBE)

REACTIONS (2)
  - Swelling of eyelid [Unknown]
  - Seasonal allergy [Unknown]
